FAERS Safety Report 17159187 (Version 1)
Quarter: 2019Q4

REPORT INFORMATION
  Report Type: Spontaneous
  Country: US (occurrence: US)
  Receive Date: 20191214
  Receipt Date: 20191214
  Transmission Date: 20200122
  Serious: Yes (Hospitalization)
  Sender: FDA-Public Use
  Company Number: None

PATIENT
  Age: 79 Year
  Sex: Female
  Weight: 64.5 kg

DRUGS (4)
  1. RIVAROXABAN [Suspect]
     Active Substance: RIVAROXABAN
     Indication: ATRIAL FIBRILLATION
     Route: 048
     Dates: start: 20150405
  2. LOSARTAN/HCTZ 100/12.5MG DAILY [Concomitant]
  3. MULTIVITAMIN DAILY [Concomitant]
  4. FAMOTIDINE 20MG BID [Concomitant]

REACTIONS (8)
  - Osteoarthritis [None]
  - Face injury [None]
  - Arthralgia [None]
  - Haematoma [None]
  - Swelling face [None]
  - Fall [None]
  - Patella fracture [None]
  - Joint effusion [None]

NARRATIVE: CASE EVENT DATE: 20160519
